FAERS Safety Report 6370097-0 (Version None)
Quarter: 2009Q3

REPORT INFORMATION
  Report Type: 
  Country: None (occurrence: None)
  Receive Date: 20090923
  Receipt Date: 20070705
  Transmission Date: 20100115
  Serious: No
  Sender: FDA-Public Use
  Company Number: US-ASTRAZENECA-2006UW20996

PATIENT
  Age: 30 Year
  Sex: Male
  Weight: 111.1 kg

DRUGS (9)
  1. SEROQUEL [Suspect]
     Indication: HALLUCINATION, AUDITORY
     Route: 048
     Dates: start: 19970101, end: 20040101
  2. SEROQUEL [Suspect]
     Indication: DEPRESSION
     Route: 048
     Dates: start: 19970101, end: 20040101
  3. SEROQUEL [Suspect]
     Dosage: 100-600 MG
     Route: 048
     Dates: start: 20030912
  4. SEROQUEL [Suspect]
     Dosage: 100-600 MG
     Route: 048
     Dates: start: 20030912
  5. ABILIFY [Concomitant]
     Dates: start: 20030101, end: 20040101
  6. PAXIL [Concomitant]
     Dosage: 20-50 MG
     Dates: start: 20030912
  7. DIPHENHYDRAMINE HCL [Concomitant]
     Dates: start: 20030912
  8. GLUCOPHAGE [Concomitant]
     Dosage: 500-1000 MG
     Route: 048
     Dates: start: 20040927
  9. SIMVASTATIN [Concomitant]
     Dates: start: 20040927

REACTIONS (6)
  - BIPOLAR DISORDER [None]
  - BLOOD CHOLESTEROL INCREASED [None]
  - DIABETES MELLITUS [None]
  - DYSLIPIDAEMIA [None]
  - HYPERLIPIDAEMIA [None]
  - TYPE 2 DIABETES MELLITUS [None]
